FAERS Safety Report 4431496-7 (Version None)
Quarter: 2004Q3

REPORT INFORMATION
  Report Type: 
  Country: None (occurrence: None)
  Receive Date: 20040824
  Receipt Date: 20040812
  Transmission Date: 20050211
  Serious: Yes (Hospitalization)
  Sender: FDA-Public Use
  Company Number: US-BRISTOL-MYERS SQUIBB COMPANY-12669909

PATIENT
  Age: 44 Year
  Sex: Male

DRUGS (4)
  1. KENALOG [Suspect]
     Indication: BACK PAIN
     Route: 008
     Dates: start: 20040603, end: 20040610
  2. OMNIPAQUE 240 [Suspect]
     Indication: BACK PAIN
     Route: 008
     Dates: start: 20040603, end: 20040610
  3. OXYCODONE HCL [Suspect]
     Indication: BACK PAIN
  4. METHYLPREDNISOLONE [Suspect]

REACTIONS (3)
  - APPLICATION SITE INFLAMMATION [None]
  - APPLICATION SITE PAIN [None]
  - PYREXIA [None]
